FAERS Safety Report 12784471 (Version 2)
Quarter: 2016Q3

REPORT INFORMATION
  Report Type: Report from Study
  Country: IT (occurrence: IT)
  Receive Date: 20160927
  Receipt Date: 20160929
  Transmission Date: 20161109
  Serious: Yes (Life-Threatening)
  Sender: FDA-Public Use
  Company Number: IT-PFIZER INC-2016436918

PATIENT
  Age: 61 Year
  Sex: Female

DRUGS (2)
  1. TRABECTEDIN [Suspect]
     Active Substance: TRABECTEDIN
     Indication: OVARIAN CANCER
     Dosage: 1.9 MG, CYCLIC
     Route: 042
     Dates: start: 20160422, end: 20160506
  2. DOXORUBICIN HCL [Suspect]
     Active Substance: DOXORUBICIN HYDROCHLORIDE
     Indication: OVARIAN CANCER
     Dosage: 4.3 MG, CYCLIC
     Route: 042
     Dates: start: 20160422, end: 20160506

REACTIONS (4)
  - Thrombocytopenia [Unknown]
  - Hypertransaminasaemia [Unknown]
  - Neutropenia [Unknown]
  - Leukopenia [Unknown]

NARRATIVE: CASE EVENT DATE: 20160506
